FAERS Safety Report 8605191-4 (Version None)
Quarter: 2012Q3

REPORT INFORMATION
  Report Type: 
  Country: None (occurrence: None)
  Receive Date: 20120820
  Receipt Date: 20120809
  Transmission Date: 20120928
  Serious: Yes (Other)
  Sender: FDA-Public Use
  Company Number: US-US-EMD SERONO, INC.-234267J08USA

PATIENT
  Sex: Female
  Weight: 63 kg

DRUGS (6)
  1. FLEXERIL [Concomitant]
     Indication: MUSCLE SPASMS
  2. REBIF [Suspect]
     Route: 058
     Dates: start: 20120101
  3. METHADONE HYDROCHLORIDE [Concomitant]
     Indication: ASTHENIA
  4. REBIF [Suspect]
     Indication: MULTIPLE SCLEROSIS
     Route: 058
     Dates: start: 20031017, end: 20120101
  5. AMBIEN [Concomitant]
     Indication: SLEEP DISORDER
     Dates: start: 20050101
  6. BUTALBITAL [Concomitant]
     Indication: PAIN
     Dates: start: 19970101

REACTIONS (16)
  - BRADYCARDIA [None]
  - ANXIETY [None]
  - WEIGHT INCREASED [None]
  - INJECTION SITE REACTION [None]
  - CORONARY ARTERY OCCLUSION [None]
  - DIZZINESS [None]
  - CARDIAC FLUTTER [None]
  - GAIT DISTURBANCE [None]
  - SOMNOLENCE [None]
  - DEPRESSION [None]
  - PAIN [None]
  - HEPATIC ENZYME INCREASED [None]
  - ANGER [None]
  - CARDIAC FAILURE CONGESTIVE [None]
  - MEMORY IMPAIRMENT [None]
  - INFLUENZA LIKE ILLNESS [None]
